FAERS Safety Report 19451066 (Version 1)
Quarter: 2021Q2

REPORT INFORMATION
  Report Type: Spontaneous
  Country: US (occurrence: US)
  Receive Date: 20210622
  Receipt Date: 20210622
  Transmission Date: 20210717
  Serious: No
  Sender: FDA-Public Use
  Company Number: US-SA-2021SA205235

PATIENT
  Age: 49 Year
  Sex: Female

DRUGS (3)
  1. NORLYDA [Concomitant]
     Active Substance: NORETHINDRONE
  2. DUPIXENT [Suspect]
     Active Substance: DUPILUMAB
     Indication: ASTHMA
     Dosage: 300 MG, QOW
     Route: 058
     Dates: start: 20191112
  3. NORETHINDRONE [NORETHISTERONE] [Concomitant]
     Active Substance: NORETHINDRONE

REACTIONS (2)
  - Product use issue [Unknown]
  - Visual impairment [Unknown]

NARRATIVE: CASE EVENT DATE: 20191112
